FAERS Safety Report 22239316 (Version 1)
Quarter: 2023Q2

REPORT INFORMATION
  Report Type: Spontaneous
  Country: DE (occurrence: DE)
  Receive Date: 20230421
  Receipt Date: 20230421
  Transmission Date: 20230722
  Serious: Yes (Other)
  Sender: FDA-Public Use
  Company Number: DE-EMA-DD-20230331-7180171-153111

PATIENT
  Age: 61 Year
  Sex: Female

DRUGS (4)
  1. AMLODIPINE [Suspect]
     Active Substance: AMLODIPINE BESYLATE
     Indication: Product used for unknown indication
     Dosage: UNK, THERAPY START DATE AND END DATE : ASKU
     Route: 065
  2. XGEVA [Suspect]
     Active Substance: DENOSUMAB
     Indication: Product used for unknown indication
     Dosage: UNK, THERAPY START DATE AND END DATE : ASKU
     Route: 065
  3. IBRANCE [Suspect]
     Active Substance: PALBOCICLIB
     Indication: Product used for unknown indication
     Dosage: 75 MG, UNK, UNIT DOSE : 75 MG, THERAPY START DATE AND END DATE : ASKU
     Route: 065
  4. FASLODEX [Suspect]
     Active Substance: FULVESTRANT
     Indication: Product used for unknown indication
     Dosage: UNK, THERAPY START DATE : ASKU
     Route: 065
     Dates: end: 20190506

REACTIONS (3)
  - Rhabdomyolysis [Unknown]
  - Myalgia [Unknown]
  - Full blood count abnormal [Unknown]
